FAERS Safety Report 4587208-X (Version None)
Quarter: 2005Q1

REPORT INFORMATION
  Report Type: 
  Country: None (occurrence: None)
  Receive Date: 20050218
  Receipt Date: 20050119
  Transmission Date: 20050727
  Serious: Yes (Other)
  Sender: FDA-Public Use
  Company Number: US-GLAXOSMITHKLINE-A0541305A

PATIENT
  Sex: Female

DRUGS (6)
  1. IMITREX [Suspect]
     Indication: MIGRAINE
     Route: 045
  2. IMITREX [Suspect]
     Route: 048
     Dates: start: 19990101
  3. CALCIUM GLUCONATE [Concomitant]
     Indication: DRUG USE FOR UNKNOWN INDICATION
  4. FIORINAL [Concomitant]
     Indication: MIGRAINE
  5. EVISTA [Concomitant]
     Indication: DRUG USE FOR UNKNOWN INDICATION
  6. NORTRIPTYLINE HCL [Concomitant]
     Indication: DRUG USE FOR UNKNOWN INDICATION

REACTIONS (7)
  - DRUG INEFFECTIVE [None]
  - DYSGEUSIA [None]
  - OCULAR VASCULAR DISORDER [None]
  - RETINAL DISORDER [None]
  - VISUAL ACUITY REDUCED [None]
  - VISUAL DISTURBANCE [None]
  - VISUAL FIELD DEFECT [None]
